FAERS Safety Report 4948248-1 (Version None)
Quarter: 2006Q1

REPORT INFORMATION
  Report Type: 
  Country: None (occurrence: None)
  Receive Date: 20060313
  Receipt Date: 20060301
  Transmission Date: 20060701
  Serious: Yes (Other)
  Sender: FDA-Public Use
  Company Number: 28695

PATIENT
  Sex: Female

DRUGS (1)
  1. ALDARA [Suspect]
     Indication: BASAL CELL CARCINOMA
     Dosage: 1 UNSPEC., 2 IN 1 DAY(S)
     Route: 061
     Dates: start: 20040401

REACTIONS (3)
  - HEADACHE [None]
  - MALAISE [None]
  - UNEVALUABLE EVENT [None]
